FAERS Safety Report 25082451 (Version 1)
Quarter: 2025Q1

REPORT INFORMATION
  Report Type: Spontaneous
  Country: DK (occurrence: DK)
  Receive Date: 20250317
  Receipt Date: 20250317
  Transmission Date: 20250409
  Serious: Yes (Death, Life-Threatening, Hospitalization, Other)
  Sender: CIPLA
  Company Number: DK-DKMA-31008497

PATIENT

DRUGS (1)
  1. RIVAROXABAN [Suspect]
     Active Substance: RIVAROXABAN
     Indication: Thrombosis prophylaxis
     Dosage: 20 MILLIGRAM, QD (FILM-COATED TABLET)
     Route: 048
     Dates: start: 20241121

REACTIONS (3)
  - Cerebral haemorrhage [Fatal]
  - Depressed level of consciousness [Unknown]
  - Haematemesis [Unknown]

NARRATIVE: CASE EVENT DATE: 20250223
